FAERS Safety Report 17859831 (Version 1)
Quarter: 2020Q2

REPORT INFORMATION
  Report Type: Spontaneous
  Country: IL (occurrence: IL)
  Receive Date: 20200604
  Receipt Date: 20200604
  Transmission Date: 20200714
  Serious: Yes (Other)
  Sender: FDA-Public Use
  Company Number: IL-TEVA-2020-IL-1245306

PATIENT
  Age: 33 Year
  Sex: Male

DRUGS (1)
  1. MOXYPEN ? FORTE 250 MG POWDER FOR SUSPENSION [Suspect]
     Active Substance: AMOXICILLIN

REACTIONS (2)
  - Pruritus [Unknown]
  - Rash [Unknown]
